FAERS Safety Report 10926144 (Version 1)
Quarter: 2015Q1

REPORT INFORMATION
  Report Type: Spontaneous
  Country: US (occurrence: None)
  Receive Date: 20150202
  Receipt Date: 20150202
  Transmission Date: 20150721
  Serious: Yes (Hospitalization)
  Sender: FDA-Public Use
  Company Number: TPA2012A07626

PATIENT
  Sex: Male

DRUGS (2)
  1. PLAVIX (CLOPIDOGREL BISULFATE) [Concomitant]
  2. DEXILANT [Suspect]
     Active Substance: DEXLANSOPRAZOLE
     Indication: GASTROOESOPHAGEAL REFLUX DISEASE
     Route: 048
     Dates: start: 20120615

REACTIONS (4)
  - Drug ineffective [None]
  - Cough [None]
  - Gastrooesophageal reflux disease [None]
  - Bronchial disorder [None]

NARRATIVE: CASE EVENT DATE: 2012
